FAERS Safety Report 21815255 (Version 1)
Quarter: 2023Q1

REPORT INFORMATION
  Report Type: Spontaneous
  Country: US (occurrence: US)
  Receive Date: 20230104
  Receipt Date: 20230104
  Transmission Date: 20230417
  Serious: Yes (Hospitalization)
  Sender: FDA-Public Use
  Company Number: US-STRIDES ARCOLAB LIMITED-2023SP000117

PATIENT
  Sex: Female

DRUGS (1)
  1. CALCITRIOL [Suspect]
     Active Substance: CALCITRIOL
     Indication: Hypophosphataemia
     Dosage: UNK
     Route: 065

REACTIONS (4)
  - Cardiac amyloidosis [Unknown]
  - Pulmonary hypertension [Unknown]
  - Calcinosis [Recovered/Resolved]
  - Off label use [Unknown]
